FAERS Safety Report 12007625 (Version 6)
Quarter: 2017Q2

REPORT INFORMATION
  Report Type: Report from Study
  Country: ES (occurrence: ES)
  Receive Date: 20160204
  Receipt Date: 20170421
  Transmission Date: 20170829
  Serious: Yes (Hospitalization)
  Sender: FDA-Public Use
  Company Number: ES-ROCHE-1642580

PATIENT
  Age: 59 Year
  Sex: Female
  Weight: 75 kg

DRUGS (24)
  1. DEXKETOPROFENO [Concomitant]
     Indication: BACK PAIN
     Route: 048
     Dates: start: 20150914
  2. TRAMADOL. [Concomitant]
     Active Substance: TRAMADOL
     Route: 042
     Dates: start: 20150926, end: 20150928
  3. PERTUZUMAB [Suspect]
     Active Substance: PERTUZUMAB
     Indication: NEOPLASM
     Dosage: LOADING DOSE
     Route: 042
     Dates: start: 20150320
  4. VINORELBINE [Suspect]
     Active Substance: VINORELBINE\VINORELBINE TARTRATE
     Indication: NEOPLASM
     Dosage: LAST DOSE ADMINISTERED: 51 MG, MOST RECENT DOSE PRIOR TO AE: 31/AUG/2015
     Route: 065
     Dates: start: 20150320
  5. DEXKETOPROFENO [Concomitant]
     Indication: SPINAL CORD COMPRESSION
     Route: 042
     Dates: start: 20150914
  6. PARACETAMOL [Concomitant]
     Active Substance: ACETAMINOPHEN
     Route: 048
     Dates: start: 20150928, end: 20151015
  7. DIAZEPAM. [Concomitant]
     Active Substance: DIAZEPAM
     Route: 048
     Dates: start: 20150916
  8. OMEPRAZOL [Concomitant]
     Active Substance: OMEPRAZOLE
     Route: 042
     Dates: start: 20150924, end: 20150924
  9. DOLANTINE [Concomitant]
     Dosage: ONLY ONE TIME, DOSE; 0.5 AMPULE
     Route: 058
     Dates: start: 20150621, end: 20150621
  10. PERTUZUMAB [Suspect]
     Active Substance: PERTUZUMAB
     Dosage: MAINTENANCE DOSE, ?MOST RECENT DOSE (420 MG) PRIOR TO AE: 28/AUG/2015
     Route: 042
  11. OMEPRAZOL [Concomitant]
     Active Substance: OMEPRAZOLE
     Route: 048
     Dates: start: 20150926
  12. TRASTUZUMAB [Suspect]
     Active Substance: TRASTUZUMAB
     Dosage: MAINTENANCE DOSE, ?MOST RECENT DOSE PRIOR TO AE: 24/AUG/2015
     Route: 042
  13. METOCLOPRAMIDE. [Concomitant]
     Active Substance: METOCLOPRAMIDE
     Indication: PROPHYLAXIS OF NAUSEA AND VOMITING
     Dosage: ONLY ONE TIME
     Route: 042
     Dates: start: 20150621, end: 20150621
  14. METOCLOPRAMIDE. [Concomitant]
     Active Substance: METOCLOPRAMIDE
     Route: 048
     Dates: start: 20151010, end: 20151018
  15. BUSCAPINA [Concomitant]
     Active Substance: BUTYLSCOPOLAMINE BROMIDE
     Indication: BONE PAIN
     Dosage: ONLY ONCE, DOSE: 1 AMPULE
     Route: 042
     Dates: start: 20150621, end: 20150621
  16. TRAMADOL. [Concomitant]
     Active Substance: TRAMADOL
     Indication: BACK PAIN
     Route: 048
     Dates: start: 20150501
  17. TRAMADOL. [Concomitant]
     Active Substance: TRAMADOL
     Route: 042
     Dates: start: 20150924, end: 20150925
  18. PARACETAMOL [Concomitant]
     Active Substance: ACETAMINOPHEN
     Indication: BACK PAIN
     Route: 048
  19. DIAZEPAM. [Concomitant]
     Active Substance: DIAZEPAM
     Indication: BONE PAIN
     Dosage: ONLY ONE TIME
     Route: 060
     Dates: start: 20150621, end: 20150621
  20. OMEPRAZOL [Concomitant]
     Active Substance: OMEPRAZOLE
     Indication: PROPHYLAXIS
     Dosage: ONLY ONCE
     Route: 042
     Dates: start: 20150621, end: 20150621
  21. METOCLOPRAMIDE. [Concomitant]
     Active Substance: METOCLOPRAMIDE
     Route: 042
     Dates: start: 20150926, end: 20150928
  22. TRASTUZUMAB [Suspect]
     Active Substance: TRASTUZUMAB
     Indication: NEOPLASM
     Dosage: LOADING DOSE
     Route: 042
     Dates: start: 20150320
  23. TRAMADOL. [Concomitant]
     Active Substance: TRAMADOL
     Route: 048
     Dates: start: 20150928, end: 20151001
  24. PARACETAMOL [Concomitant]
     Active Substance: ACETAMINOPHEN
     Route: 042
     Dates: start: 20150924, end: 20150928

REACTIONS (2)
  - Pulmonary embolism [Recovered/Resolved]
  - Interstitial lung disease [Recovered/Resolved]

NARRATIVE: CASE EVENT DATE: 20150926
